FAERS Safety Report 23914288 (Version 1)
Quarter: 2024Q2

REPORT INFORMATION
  Report Type: Spontaneous
  Country: CN (occurrence: CN)
  Receive Date: 20240529
  Receipt Date: 20240529
  Transmission Date: 20240716
  Serious: Yes (Hospitalization, Other)
  Sender: FDA-Public Use
  Company Number: CN-PFIZER INC-PV202400069192

PATIENT
  Age: 34 Day
  Sex: Female

DRUGS (6)
  1. SIROLIMUS [Suspect]
     Active Substance: SIROLIMUS
     Indication: Kaposiform haemangioendothelioma
     Dosage: 0.15 MG, 2X/DAY (BID)
     Route: 048
     Dates: start: 202103, end: 2021
  2. SIROLIMUS [Suspect]
     Active Substance: SIROLIMUS
     Dosage: UNK
     Dates: start: 2022
  3. DEXAMETHASONE [Concomitant]
     Active Substance: DEXAMETHASONE
     Indication: Kaposiform haemangioendothelioma
     Dosage: 1 MG/KG, 2X/DAY (BID)
     Dates: start: 202103
  4. PREDNISONE [Concomitant]
     Active Substance: PREDNISONE
     Indication: Kaposiform haemangioendothelioma
     Route: 048
  5. PROPRANOLOL [Concomitant]
     Active Substance: PROPRANOLOL HYDROCHLORIDE
     Route: 048
  6. UNSPECIFIED INGREDIENT [Concomitant]
     Active Substance: UNSPECIFIED INGREDIENT
     Indication: Prophylaxis

REACTIONS (4)
  - Intestinal perforation [Recovering/Resolving]
  - Gastrointestinal infection [Recovering/Resolving]
  - Off label use [Unknown]
  - Off label use [Unknown]
